FAERS Safety Report 9662662 (Version 1)
Quarter: 2013Q4

REPORT INFORMATION
  Report Type: Spontaneous
  Country: US (occurrence: US)
  Receive Date: 20131031
  Receipt Date: 20131031
  Transmission Date: 20140711
  Serious: No
  Sender: FDA-Public Use
  Company Number: US-PURDUE-USA-2011-0073328

PATIENT
  Sex: Male

DRUGS (1)
  1. OXYCONTIN (NDA 22-272) [Suspect]
     Indication: JOINT INJURY
     Dosage: 60 MG, Q12H
     Route: 048
     Dates: start: 20110807, end: 20110807

REACTIONS (1)
  - Dizziness [Not Recovered/Not Resolved]
